FAERS Safety Report 10188422 (Version 1)
Quarter: 2014Q2

REPORT INFORMATION
  Report Type: Report from Study
  Country: US (occurrence: US)
  Receive Date: 20140522
  Receipt Date: 20140522
  Transmission Date: 20141212
  Serious: Yes (Other)
  Sender: FDA-Public Use
  Company Number: US-ALEXION PHARMACEUTICALS INC.-A201401912

PATIENT
  Sex: 0

DRUGS (3)
  1. SOLIRIS [Suspect]
     Indication: HAEMOLYTIC URAEMIC SYNDROME
     Dosage: 1200 MG, Q2W
     Route: 042
     Dates: start: 20120206
  2. HYDROXYZ [Concomitant]
     Indication: VOMITING
     Dosage: UNK
     Route: 065
     Dates: start: 20140424
  3. TYLENOL                            /00020001/ [Concomitant]
     Indication: PAIN
     Dosage: 160 MG, Q6 HRS PRN
     Route: 065

REACTIONS (4)
  - Asthma [Recovering/Resolving]
  - Viral infection [Recovering/Resolving]
  - Headache [Unknown]
  - Nausea [Unknown]
